FAERS Safety Report 8341123-4 (Version None)
Quarter: 2012Q1

REPORT INFORMATION
  Report Type: 
  Country: None (occurrence: None)
  Receive Date: 20120330
  Receipt Date: 20110324
  Transmission Date: 20120608
  Serious: Yes (Life-Threatening, Other)
  Sender: FDA-Public Use
  Company Number: PHHY2011US19208

PATIENT
  Age: 69 Year
  Sex: Female

DRUGS (6)
  1. DIOVAN [Concomitant]
  2. EXELON [Suspect]
     Dosage: 4.5 MG, BID
  3. HYDROCHLOROTHIAZIDE [Concomitant]
  4. SOTALOL HCL [Concomitant]
  5. SIMVASTATIN [Concomitant]
  6. CARBIDOPA W/LEVODOPA (CARBIDOPA, LEVODOPA) [Concomitant]

REACTIONS (3)
  - BLOOD PRESSURE INCREASED [None]
  - MALAISE [None]
  - NAUSEA [None]
